FAERS Safety Report 14684161 (Version 7)
Quarter: 2024Q4

REPORT INFORMATION
  Report Type: Spontaneous
  Country: GB (occurrence: GB)
  Receive Date: 20180327
  Receipt Date: 20241128
  Transmission Date: 20250115
  Serious: Yes (Other)
  Sender: MACLEODS
  Company Number: None

PATIENT

DRUGS (16)
  1. OLANZAPINE [Suspect]
     Active Substance: OLANZAPINE
     Indication: Mixed dementia
     Dosage: 5 MG, BID OFF LABEL USE
     Route: 065
  2. OLANZAPINE [Suspect]
     Active Substance: OLANZAPINE
     Indication: Product used for unknown indication
  3. MEMANTINE [Suspect]
     Active Substance: MEMANTINE
     Indication: Mixed dementia
     Dosage: 5 MILLIGRAM, QD, SOLUBLE TABLET
     Route: 048
  4. MEMANTINE [Suspect]
     Active Substance: MEMANTINE
     Indication: Dementia Alzheimer^s type
     Dosage: 05 MILLIGRAM, QD,  TABLET
     Route: 048
  5. MEMANTINE [Suspect]
     Active Substance: MEMANTINE
     Indication: Vascular dementia
     Dosage: 10 MG, QD,AT NIGHT (SOLUBLE TABLET)
     Route: 048
  6. MEMANTINE [Suspect]
     Active Substance: MEMANTINE
     Indication: Dementia
  7. QUETIAPINE [Suspect]
     Active Substance: QUETIAPINE
     Indication: Mixed dementia
     Dosage: 100 MILLIGRAM DAILY;  QD, PATIENT WAS RECEIVING QUETIAPINE 50MG AT NIGHT AND 50MG AT 09:00 A
     Route: 065
  8. QUETIAPINE [Suspect]
     Active Substance: QUETIAPINE
     Indication: Mental disorder
     Dosage: 100 MILLIGRAM, QD, FILM-COATED TABLET
     Route: 048
  9. QUETIAPINE [Suspect]
     Active Substance: QUETIAPINE
     Indication: Dementia Alzheimer^s type
     Dosage: UNK
     Route: 065
  10. QUETIAPINE [Suspect]
     Active Substance: QUETIAPINE
     Indication: Vascular dementia
     Dosage: 50 MG,EVERY 12 HOURS,AT NIGHT AND AT 09:00
     Route: 065
  11. QUETIAPINE [Suspect]
     Active Substance: QUETIAPINE
     Dosage: UNK
     Route: 065
  12. LORAZEPAM [Concomitant]
     Active Substance: LORAZEPAM
     Indication: Vascular dementia
     Dosage: 0.5 MILLIGRAM, QD, AT 14:00
     Route: 065
  13. LORAZEPAM [Concomitant]
     Active Substance: LORAZEPAM
     Indication: Dementia Alzheimer^s type
     Dosage: 0.5 MG DAILY, QD,AT 14:00
     Route: 065
  14. LORAZEPAM [Concomitant]
     Active Substance: LORAZEPAM
     Dosage: UNK
     Route: 065
  15. SERTRALINE [Concomitant]
     Active Substance: SERTRALINE HYDROCHLORIDE
     Indication: Vascular dementia
     Dosage: 150 MG DAILY;  UNK, AT 9.00
     Route: 065
  16. SERTRALINE [Concomitant]
     Active Substance: SERTRALINE HYDROCHLORIDE
     Indication: Dementia Alzheimer^s type
     Dosage: UNK
     Route: 065

REACTIONS (6)
  - Bradycardia [Recovered/Resolved]
  - Therapeutic product effect incomplete [Unknown]
  - Drug ineffective [Unknown]
  - Anaemia [Unknown]
  - Off label use [Unknown]
  - Product use in unapproved indication [Unknown]
